FAERS Safety Report 4374086-7 (Version None)
Quarter: 2004Q2

REPORT INFORMATION
  Report Type: 
  Country: None (occurrence: None)
  Receive Date: 20040603
  Receipt Date: 20040525
  Transmission Date: 20050107
  Serious: Yes (Other)
  Sender: FDA-Public Use
  Company Number: 200411849BCC

PATIENT
  Sex: Female

DRUGS (8)
  1. BAYER EXTRA STRENGTH ASPIRIN [Suspect]
     Indication: MYOCARDIAL INFARCTION
     Dosage: 550 MG, QD, ORAL
     Route: 048
  2. BAYER EXTRA STRENGTH ASPIRIN [Suspect]
     Indication: PROPHYLAXIS
     Dosage: 550 MG, QD, ORAL
     Route: 048
  3. AXID [Concomitant]
  4. LIPITOR [Concomitant]
  5. NORVASC [Concomitant]
  6. DONNATAL [Concomitant]
  7. PROPACET 100 [Concomitant]
  8. HORMONE PILL (NOS) [Concomitant]

REACTIONS (3)
  - CARDIAC VALVE DISEASE [None]
  - CONTRAINDICATION TO MEDICAL TREATMENT [None]
  - GASTRIC DISORDER [None]
